FAERS Safety Report 4933670-X (Version None)
Quarter: 2006Q1

REPORT INFORMATION
  Report Type: 
  Country: None (occurrence: None)
  Receive Date: 20060306
  Receipt Date: 20060303
  Transmission Date: 20060701
  Serious: Yes (Other)
  Sender: FDA-Public Use
  Company Number: US-GLAXOSMITHKLINE-A0596109A

PATIENT
  Sex: Male

DRUGS (1)
  1. SOMINEX MAXIMUM STRENGTH CAPLETS [Suspect]
     Indication: DRUG USE FOR UNKNOWN INDICATION
     Route: 048
     Dates: start: 20060302

REACTIONS (4)
  - FEELING ABNORMAL [None]
  - HALLUCINATION [None]
  - OVERDOSE [None]
  - TREMOR [None]
